FAERS Safety Report 4952504-0 (Version None)
Quarter: 2006Q1

REPORT INFORMATION
  Report Type: 
  Country: None (occurrence: None)
  Receive Date: 20060323
  Receipt Date: 20051007
  Transmission Date: 20060701
  Serious: Yes (Hospitalization)
  Sender: FDA-Public Use
  Company Number: US-MERCK-0510USA06361

PATIENT
  Age: 73 Year
  Sex: Male
  Weight: 84 kg

DRUGS (1)
  1. VIOXX [Suspect]
     Indication: ARTHRITIS
     Route: 048
     Dates: start: 20030516, end: 20040829

REACTIONS (4)
  - CARDIOVASCULAR DISORDER [None]
  - CHEST PAIN [None]
  - GALLBLADDER DISORDER [None]
  - MYOCARDIAL INFARCTION [None]
